FAERS Safety Report 5828774 (Version 3)
Quarter: 2013Q2

REPORT INFORMATION
  Report Type: Spontaneous
  Country: GB (occurrence: GB)
  Receive Date: 20050630
  Receipt Date: 20130409
  Transmission Date: 20140414
  Serious: Yes (Hospitalization)
  Sender: FDA-Public Use
  Company Number: GB-JNJFOC-20050606271

PATIENT
  Age: 20 Year
  Sex: Male
  Weight: 85 kg

DRUGS (1)
  1. IBUPROFEN [Suspect]
     Indication: PAIN
     Dosage: 1.8-2.4 GRAMS AS NEEDED
     Route: 048
     Dates: start: 200505

REACTIONS (4)
  - Renal failure acute [Recovering/Resolving]
  - Renal tubular necrosis [Recovering/Resolving]
  - Back pain [Recovering/Resolving]
  - Fluid overload [Recovering/Resolving]
